FAERS Safety Report 5731685-5 (Version None)
Quarter: 2008Q2

REPORT INFORMATION
  Report Type: 
  Country: None (occurrence: None)
  Receive Date: 20080508
  Receipt Date: 20080428
  Transmission Date: 20081010
  Serious: Yes (Hospitalization)
  Sender: FDA-Public Use
  Company Number: DE-ELI_LILLY_AND_COMPANY-DE200802006178

PATIENT
  Sex: Male
  Weight: 80 kg

DRUGS (1)
  1. PEMETREXED [Suspect]
     Indication: NON-SMALL CELL LUNG CANCER
     Dosage: 500 MG, UNKNOWN
     Route: 065
     Dates: start: 20071221, end: 20080111

REACTIONS (3)
  - CANDIDA PNEUMONIA [None]
  - DYSPNOEA [None]
  - NEUTROPENIA [None]
